FAERS Safety Report 10700343 (Version 1)
Quarter: 2015Q1

REPORT INFORMATION
  Report Type: Spontaneous
  Country: US (occurrence: None)
  Receive Date: 20150108
  Receipt Date: 20150108
  Transmission Date: 20150721
  Serious: Yes (Life-Threatening, Hospitalization)
  Sender: FDA-Public Use
  Company Number: None

PATIENT
  Age: 72 Year
  Sex: Male
  Weight: 81 kg

DRUGS (1)
  1. OXALIPLATIN 5 MG/ML, CONCENTRATE FOR SOLUTION FOR INFUSION [Suspect]
     Active Substance: OXALIPLATIN
     Indication: COLON CANCER
     Dosage: 216MG (115MG/M^2), Q3WEEKS, INTRAVENOUS
     Route: 042
     Dates: start: 20150105

REACTIONS (10)
  - Chest pain [None]
  - Anaphylactic reaction [None]
  - Haematuria [None]
  - Unresponsive to stimuli [None]
  - Nausea [None]
  - Blood pressure decreased [None]
  - Cardio-respiratory arrest [None]
  - Heart rate decreased [None]
  - Vomiting [None]
  - Troponin increased [None]

NARRATIVE: CASE EVENT DATE: 20150105
